FAERS Safety Report 24146933 (Version 3)
Quarter: 2025Q3

REPORT INFORMATION
  Report Type: Spontaneous
  Country: IN (occurrence: IN)
  Receive Date: 20240729
  Receipt Date: 20250731
  Transmission Date: 20251020
  Serious: Yes (Other)
  Sender: PFIZER
  Company Number: IN-PFIZER INC-PV202400096775

PATIENT
  Age: 76 Year
  Sex: Female
  Weight: 64.6 kg

DRUGS (2)
  1. DACOMITINIB [Suspect]
     Active Substance: DACOMITINIB
     Dosage: 45 MG, 1X/DAY
     Route: 048
     Dates: start: 202406
  2. DACOMITINIB [Suspect]
     Active Substance: DACOMITINIB
     Dosage: 30 MG, 1X/DAY
     Route: 048

REACTIONS (8)
  - Blood pressure increased [Unknown]
  - Urinary tract infection [Unknown]
  - Diarrhoea [Not Recovered/Not Resolved]
  - Rash [Not Recovered/Not Resolved]
  - Paronychia [Unknown]
  - Haemorrhage [Unknown]
  - Blood thyroid stimulating hormone increased [Unknown]
  - Pain [Unknown]

NARRATIVE: CASE EVENT DATE: 20240701
